FAERS Safety Report 7401779-7 (Version None)
Quarter: 2011Q1

REPORT INFORMATION
  Report Type: 
  Country: None (occurrence: None)
  Receive Date: 20110329
  Receipt Date: 20110316
  Transmission Date: 20110831
  Serious: Yes (Hospitalization)
  Sender: FDA-Public Use
  Company Number: 1000019518

PATIENT
  Age: 79 Year
  Sex: Female

DRUGS (2)
  1. BACTRIM [Suspect]
     Dosage: 6 DOSAGE FORMS (6 DOSAGE FORMS, 1 IN 1 D), ORAL
     Route: 048
     Dates: start: 20110218, end: 20110226
  2. ESCITALOPRAM (ESCITALOPRAM OXALATE) (TABLETS) [Suspect]
     Indication: DEPRESSION
     Dosage: 10 MG (10 MG, 1 IN 1 D), ORAL
     Route: 048
     Dates: start: 20101228, end: 20110221

REACTIONS (6)
  - HYPONATRAEMIA [None]
  - RENAL FAILURE [None]
  - HYPERKALAEMIA [None]
  - ASTHENIA [None]
  - GASTROINTESTINAL DISORDER [None]
  - GENERAL PHYSICAL HEALTH DETERIORATION [None]
